FAERS Safety Report 15799312 (Version 2)
Quarter: 2019Q2

REPORT INFORMATION
  Report Type: Spontaneous
  Country: US (occurrence: US)
  Receive Date: 20190108
  Receipt Date: 20190510
  Transmission Date: 20190711
  Serious: Yes (Other)
  Sender: FDA-Public Use
  Company Number: US-PFIZER INC-2019008345

PATIENT
  Sex: Male

DRUGS (1)
  1. ESTROGENS CONJUGATED [Suspect]
     Active Substance: ESTROGENS, CONJUGATED
     Indication: TRANSGENDER HORMONAL THERAPY
     Dosage: UNK

REACTIONS (2)
  - Testis cancer [Unknown]
  - Product use in unapproved indication [Unknown]
